FAERS Safety Report 12318740 (Version 2)
Quarter: 2016Q2

REPORT INFORMATION
  Report Type: Spontaneous
  Country: CN (occurrence: CN)
  Receive Date: 20160429
  Receipt Date: 20160506
  Transmission Date: 20160815
  Serious: Yes (Other)
  Sender: FDA-Public Use
  Company Number: CN-WATSON-2016-08704

PATIENT
  Age: 66 Year
  Sex: Male

DRUGS (2)
  1. WARFARIN (UNKNOWN) [Suspect]
     Active Substance: WARFARIN
     Indication: VENOUS THROMBOSIS
     Dosage: 3 MG, DAILY
     Route: 048
     Dates: start: 20150522
  2. HEPARIN [Suspect]
     Active Substance: HEPARIN SODIUM
     Indication: VENOUS THROMBOSIS
     Dosage: 4100 IU, DAILY
     Route: 023
     Dates: start: 20150522

REACTIONS (4)
  - Aortic aneurysm [Recovering/Resolving]
  - Haemothorax [Recovering/Resolving]
  - Mediastinal haematoma [Recovering/Resolving]
  - Arterial rupture [Recovering/Resolving]
